FAERS Safety Report 8262379-2 (Version None)
Quarter: 2012Q2

REPORT INFORMATION
  Report Type: 
  Country: None (occurrence: None)
  Receive Date: 20120402
  Receipt Date: 20120316
  Transmission Date: 20120825
  Serious: Yes (Death, Hospitalization)
  Sender: FDA-Public Use
  Company Number: 2012DE0104

PATIENT
  Age: 70 Year
  Sex: Female

DRUGS (12)
  1. ENOXAPARIN SODIUM [Concomitant]
  2. KINERET [Suspect]
     Dosage: 100 MG (100 MG, 1 IN 1 D)
  3. PANTOZOL (PANTOPRAZOLE) [Concomitant]
  4. OPTORAL (CYCLOSPORIN A) [Concomitant]
  5. ENALAPRIL MALEATE [Concomitant]
  6. ALDACTONE [Concomitant]
  7. PREDNISOLONE [Concomitant]
  8. NOVAMIN (PROCHLORPERAZINE) [Concomitant]
  9. BELOC ZOC MITE (METOPROLOL) [Concomitant]
  10. PASPERTIN (METOCLOPRAMIDE) [Concomitant]
  11. LEVOTHYROXINE SODIUM [Concomitant]
  12. VIGANTOLETTE (CHOLECALCIFEROL) [Concomitant]

REACTIONS (16)
  - ROTATOR CUFF SYNDROME [None]
  - APPENDIX DISORDER [None]
  - PERIDIVERTICULITIS [None]
  - IMPAIRED HEALING [None]
  - CIRCULATORY COLLAPSE [None]
  - OLIGURIA [None]
  - WOUND DEHISCENCE [None]
  - RENAL IMPAIRMENT [None]
  - DIVERTICULAR PERFORATION [None]
  - ABSCESS INTESTINAL [None]
  - INFECTIOUS PERITONITIS [None]
  - SKIN EXFOLIATION [None]
  - HYPOTENSION [None]
  - FALL [None]
  - CARDIAC FAILURE [None]
  - GASTROINTESTINAL STOMA NECROSIS [None]
